FAERS Safety Report 4970687-3 (Version None)
Quarter: 2006Q2

REPORT INFORMATION
  Report Type: 
  Country: None (occurrence: None)
  Receive Date: 20060412
  Receipt Date: 20060404
  Transmission Date: 20061013
  Serious: Yes (Other)
  Sender: FDA-Public Use
  Company Number: PHEH2006US04525

PATIENT

DRUGS (1)
  1. ZOMETA [Suspect]
     Dosage: UNK,UNK

REACTIONS (1)
  - OSTEONECROSIS [None]
